FAERS Safety Report 25263673 (Version 2)
Quarter: 2025Q2

REPORT INFORMATION
  Report Type: Spontaneous
  Country: US (occurrence: US)
  Receive Date: 20250502
  Receipt Date: 20250519
  Transmission Date: 20250717
  Serious: Yes (Hospitalization, Other)
  Sender: PFIZER
  Company Number: US-PFIZER INC-202500091899

PATIENT
  Age: 63 Year
  Sex: Male

DRUGS (5)
  1. FENTANYL CITRATE [Suspect]
     Active Substance: FENTANYL CITRATE
  2. COCAINE [Suspect]
     Active Substance: COCAINE
  3. DIPHENHYDRAMINE [Suspect]
     Active Substance: DIPHENHYDRAMINE
  4. MEDETOMIDINE [Suspect]
     Active Substance: MEDETOMIDINE
  5. XYLAZINE [Suspect]
     Active Substance: XYLAZINE

REACTIONS (2)
  - Toxicity to various agents [Unknown]
  - Overdose [Unknown]
